FAERS Safety Report 4743430-0 (Version None)
Quarter: 2005Q3

REPORT INFORMATION
  Report Type: 
  Country: None (occurrence: None)
  Receive Date: 20050812
  Receipt Date: 20050805
  Transmission Date: 20060218
  Serious: Yes (Other)
  Sender: FDA-Public Use
  Company Number: US-BRACCO-BDI-007436

PATIENT
  Sex: Female
  Weight: 58.5 kg

DRUGS (7)
  1. ISOVUE-128 [Suspect]
     Indication: CORONARY ARTERY DISEASE
     Route: 016
     Dates: start: 20050803, end: 20050803
  2. ISOVUE-128 [Suspect]
     Indication: VASCULAR ULTRASOUND
     Route: 016
     Dates: start: 20050803, end: 20050803
  3. ISOVUE-128 [Suspect]
     Indication: STENT PLACEMENT
     Route: 016
     Dates: start: 20050803, end: 20050803
  4. VERSED [Suspect]
     Route: 042
     Dates: start: 20050803, end: 20050803
  5. FENTANYL [Suspect]
     Route: 042
     Dates: start: 20050803, end: 20050803
  6. BENADRYL [Interacting]
     Dosage: THREE DOSES
     Route: 048
     Dates: start: 20050802, end: 20050803
  7. SOLU-MEDROL [Interacting]
     Dosage: THREE DOSES
     Route: 048
     Dates: start: 20050802, end: 20050803

REACTIONS (5)
  - BLOOD PRESSURE INCREASED [None]
  - DEPRESSED LEVEL OF CONSCIOUSNESS [None]
  - ERYTHEMA [None]
  - RESPIRATORY DEPRESSION [None]
  - URTICARIA [None]
